FAERS Safety Report 7319470-4 (Version None)
Quarter: 2011Q1

REPORT INFORMATION
  Report Type: 
  Country: None (occurrence: None)
  Receive Date: 20110228
  Receipt Date: 20100401
  Transmission Date: 20110831
  Serious: No
  Sender: FDA-Public Use
  Company Number: A0853772A

PATIENT
  Age: 54 Year
  Sex: Female

DRUGS (3)
  1. SEROQUEL [Concomitant]
  2. VESICARE [Concomitant]
  3. LAMOTRIGINE [Suspect]
     Dosage: 300MG PER DAY
     Route: 048

REACTIONS (1)
  - CONDITION AGGRAVATED [None]
